FAERS Safety Report 19779232 (Version 2)
Quarter: 2021Q3

REPORT INFORMATION
  Report Type: Report from Study
  Country: IT (occurrence: IT)
  Receive Date: 20210902
  Receipt Date: 20210907
  Transmission Date: 20211014
  Serious: Yes (Other)
  Sender: FDA-Public Use
  Company Number: IT-TEVA-2021-IT-1947265

PATIENT
  Age: 51 Year
  Sex: Female

DRUGS (9)
  1. ANSIOLIN [Concomitant]
     Active Substance: DIAZEPAM
  2. ATENOLOL. [Concomitant]
     Active Substance: ATENOLOL
  3. LYRICA [Concomitant]
     Active Substance: PREGABALIN
  4. TORA?DOL [Concomitant]
     Active Substance: KETOROLAC TROMETHAMINE
  5. OKI [Suspect]
     Active Substance: KETOPROFEN LYSINE
     Route: 065
  6. LASIX [Concomitant]
     Active Substance: FUROSEMIDE
  7. ZOLPIDEM [Suspect]
     Active Substance: ZOLPIDEM TARTRATE
     Indication: PRODUCT USED FOR UNKNOWN INDICATION
     Dosage: 2 DF
     Route: 065
  8. TACHIPIRINA [Suspect]
     Active Substance: ACETAMINOPHEN
     Route: 065
  9. INSULIN [Concomitant]
     Active Substance: INSULIN NOS

REACTIONS (3)
  - Oedema [Recovering/Resolving]
  - Sopor [Recovering/Resolving]
  - Medication error [Recovering/Resolving]

NARRATIVE: CASE EVENT DATE: 20210630
